FAERS Safety Report 8277585-0 (Version None)
Quarter: 2012Q2

REPORT INFORMATION
  Report Type: 
  Country: None (occurrence: None)
  Receive Date: 20120412
  Receipt Date: 20120409
  Transmission Date: 20120825
  Serious: Yes (Other)
  Sender: FDA-Public Use
  Company Number: US-BAYER-200816408NA

PATIENT
  Age: 51 Year
  Sex: Female
  Weight: 64.091 kg

DRUGS (79)
  1. OPTIMARK [Suspect]
     Indication: FISTULOGRAM
  2. ATENOLOL [Concomitant]
     Route: 048
  3. ALLOPURINOL [Concomitant]
     Route: 048
  4. ACETAMINOPHEN [Concomitant]
     Route: 048
     Dates: start: 20070613, end: 20070613
  5. CALCITRIOL [Concomitant]
     Route: 048
  6. NITROGLYCERIN [Concomitant]
     Route: 060
  7. OMEPRAZOLE [Concomitant]
     Route: 048
  8. MAGNEVIST [Suspect]
     Indication: ARTERIOVENOUS FISTULA OPERATION
     Dates: start: 20061128, end: 20061128
  9. OMNISCAN [Suspect]
     Indication: FISTULOGRAM
  10. OPTIMARK [Suspect]
     Indication: VENOGRAM
  11. ATENOLOL [Concomitant]
     Route: 048
  12. ACETAMINOPHEN [Concomitant]
     Route: 048
     Dates: start: 20070615, end: 20070615
  13. ACETAMINOPHEN [Concomitant]
     Route: 048
     Dates: start: 20070725, end: 20070725
  14. LOPERAMIDE [Concomitant]
     Route: 048
  15. TRAMADOL HCL [Concomitant]
  16. MAGNEVIST [Suspect]
     Indication: NUCLEAR MAGNETIC RESONANCE IMAGING
     Dosage: UNK, ONCE
     Dates: start: 20010111, end: 20010111
  17. PROHANCE [Suspect]
     Indication: FISTULOGRAM
  18. COUMADIN [Concomitant]
     Dosage: MON, TUES, WED, FRI, SAT 1/2 TABLET DAILY; MR 29-JUL-2007 1/2 TAB (M/W/THURS/FRI/SAT)
  19. RENAGEL [Concomitant]
     Dosage: 4-5 CAPSULES W/MEALS AND 3-4 CAPSULES W/SNACKS
     Route: 048
  20. NIFEDIPINE [Concomitant]
  21. VITAMIN B12 [Concomitant]
     Dosage: 1,000 MCG/ML
  22. IMMUNE GLOBULIN NOS [Concomitant]
     Route: 042
     Dates: start: 20070725, end: 20070725
  23. ACETAMINOPHEN [Concomitant]
     Route: 048
     Dates: start: 20070622, end: 20070622
  24. FOSRENOL [Concomitant]
     Dosage: CHEW
     Route: 048
  25. CARDIZEM [Concomitant]
  26. MAGNEVIST [Suspect]
     Indication: VENOUS PRESSURE INCREASED
     Dosage: UNK, ONCE
     Dates: start: 20041209, end: 20041209
  27. PROHANCE [Suspect]
     Indication: VENOGRAM
  28. CORTICOSTEROIDS [Concomitant]
  29. PROTONIX [Concomitant]
  30. RENAGEL [Concomitant]
     Dosage: MR 29-JUL-2007: SIX TABLETS WITH MEALS, THREE TABLETS WITH SNACKS
  31. NEPHRO-VITE [VITAMINS NOS] [Concomitant]
     Dosage: 1
     Route: 048
  32. ALLOPURINOL [Concomitant]
     Dosage: MR 03-JUN-1996: QAM
  33. ACETAMINOPHEN [Concomitant]
     Route: 048
     Dates: start: 20070620, end: 20070620
  34. BENADRYL [Concomitant]
     Route: 048
     Dates: start: 20070613, end: 20070613
  35. BENADRYL [Concomitant]
     Route: 048
     Dates: start: 20070620, end: 20070620
  36. MULTIHANCE [Suspect]
     Indication: VENOGRAM
  37. CALCIUM CARBONATE [Concomitant]
     Dosage: 2 TABLETS DAILY
     Route: 048
  38. REGLAN [Concomitant]
  39. AMIODARONE HCL [Concomitant]
     Dosage: PER MR 24-APR-2007 AND 15-MAY-2007
     Route: 048
  40. VICODIN [Concomitant]
  41. PHOSLO [Concomitant]
     Dosage: 1 TABLET TID W/MEALS
  42. PLENDIL [Concomitant]
     Route: 048
  43. UREACIN [Concomitant]
     Route: 061
  44. OMNISCAN [Suspect]
     Indication: VENOGRAM
     Route: 042
  45. PREDNISONE TAB [Concomitant]
     Dosage: MR OF 29-JUL-2007 TAPER OF PREDNISONE 40MG DAILY X 2 DAYS, THEN 20 MG DAILY X 2 DAYS, THEN OFF
     Dates: start: 20070729, end: 20070801
  46. LEVOTHROID [Concomitant]
     Dosage: PER MR 24-APR-2007; 0.025 MG, TWO DAILY
  47. CALCIUM CARBONATE [Concomitant]
     Route: 048
  48. EPOGEN [Concomitant]
  49. PROCARDIA XL [Concomitant]
     Route: 048
  50. PRAVACHOL [Concomitant]
     Route: 048
  51. PRILOSEC [Concomitant]
     Route: 048
  52. SENSIPAR [Concomitant]
     Dates: start: 20060101, end: 20070301
  53. CYCLOSPORINE [Concomitant]
     Dosage: 100 MG Q AM AND 50 MG Q PM
  54. IMODIUM [Concomitant]
  55. BENADRYL [Concomitant]
     Route: 048
     Dates: start: 20070615, end: 20070615
  56. BENADRYL [Concomitant]
     Route: 048
     Dates: start: 20070725, end: 20070725
  57. PRAVASTATIN [Concomitant]
     Route: 048
  58. MAGNEVIST [Suspect]
     Indication: DIALYSIS EFFICACY TEST
     Route: 042
     Dates: start: 20060926, end: 20060926
  59. MAGNEVIST [Suspect]
     Indication: DIALYSIS
  60. OPTIMARK [Suspect]
     Indication: NUCLEAR MAGNETIC RESONANCE IMAGING
     Route: 042
  61. MULTIHANCE [Suspect]
     Indication: NUCLEAR MAGNETIC RESONANCE IMAGING
     Route: 042
  62. MULTIHANCE [Suspect]
     Indication: FISTULOGRAM
  63. LEVOTHROID [Concomitant]
     Dosage: AS OF 27-MAR-2007
     Route: 048
  64. COUMADIN [Concomitant]
     Dosage: 1 TABLET SUNDAY AND THURSDAY; MR 29-JUL-2007 1 TABLET SUNDAY AND TUESDAY
  65. IMMUNE GLOBULIN NOS [Concomitant]
     Route: 042
     Dates: start: 20070613, end: 20070613
  66. ACETAMINOPHEN [Concomitant]
  67. BENADRYL [Concomitant]
     Route: 048
     Dates: start: 20070622, end: 20070622
  68. OMNISCAN [Suspect]
     Indication: NUCLEAR MAGNETIC RESONANCE IMAGING
  69. PROHANCE [Suspect]
     Indication: NUCLEAR MAGNETIC RESONANCE IMAGING
     Route: 042
  70. COUMADIN [Concomitant]
     Route: 048
     Dates: end: 20070101
  71. PROTONIX [Concomitant]
     Dosage: PER MR 24-APR-2007
     Route: 048
  72. EPOETIN NOS [Concomitant]
  73. SENSIPAR [Concomitant]
     Route: 048
  74. IMMUNE GLOBULIN NOS [Concomitant]
     Route: 042
     Dates: start: 20070615, end: 20070615
  75. IMMUNE GLOBULIN NOS [Concomitant]
     Route: 042
     Dates: start: 20070620, end: 20070620
  76. IMMUNE GLOBULIN NOS [Concomitant]
     Route: 042
     Dates: start: 20070622, end: 20070622
  77. METOCLOPRAMIDE [Concomitant]
     Route: 048
  78. PEG-3350 AND ELECTROLYTES [Concomitant]
     Route: 048
  79. METOPROLOL TARTRATE [Concomitant]
     Indication: HYPERTENSION
     Dosage: UNK
     Dates: start: 20000101

REACTIONS (29)
  - SKIN EXFOLIATION [None]
  - DERMATITIS [None]
  - PAIN [None]
  - PERIPHERAL COLDNESS [None]
  - EMOTIONAL DISTRESS [None]
  - SKIN HYPERTROPHY [None]
  - SKIN HAEMORRHAGE [None]
  - ACTIVITIES OF DAILY LIVING IMPAIRED [None]
  - SKIN INDURATION [None]
  - SCAR [None]
  - INJURY [None]
  - ERYTHEMA [None]
  - SKIN FISSURES [None]
  - PRURITUS [None]
  - JOINT STIFFNESS [None]
  - MOBILITY DECREASED [None]
  - SCLERODACTYLIA [None]
  - BURNING SENSATION [None]
  - DYSSTASIA [None]
  - NEPHROGENIC SYSTEMIC FIBROSIS [None]
  - SKIN DISCOLOURATION [None]
  - PAIN IN EXTREMITY [None]
  - INSOMNIA [None]
  - SKIN TIGHTNESS [None]
  - JOINT RANGE OF MOTION DECREASED [None]
  - OEDEMA PERIPHERAL [None]
  - MOTOR DYSFUNCTION [None]
  - DRY SKIN [None]
  - ANXIETY [None]
